FAERS Safety Report 12008067 (Version 1)
Quarter: 2016Q1

REPORT INFORMATION
  Report Type: Spontaneous
  Country: US (occurrence: None)
  Receive Date: 20160203
  Receipt Date: 20160203
  Transmission Date: 20160526
  Serious: Yes (Hospitalization)
  Sender: FDA-Public Use
  Company Number: None

PATIENT
  Age: 58 Year
  Sex: Female

DRUGS (2)
  1. FORTEO [Suspect]
     Active Substance: TERIPARATIDE
     Indication: BONE DISORDER
     Route: 058
     Dates: start: 201509
  2. FORTEO [Suspect]
     Active Substance: TERIPARATIDE
     Indication: POSTOPERATIVE CARE
     Route: 058
     Dates: start: 201509

REACTIONS (6)
  - Thyroid hormones increased [None]
  - Pain [None]
  - Fatigue [None]
  - Atrial fibrillation [None]
  - Tachycardia [None]
  - Back pain [None]

NARRATIVE: CASE EVENT DATE: 20160121
